FAERS Safety Report 5743140-7 (Version None)
Quarter: 2008Q2

REPORT INFORMATION
  Report Type: 
  Country: None (occurrence: None)
  Receive Date: 20080519
  Receipt Date: 20080513
  Transmission Date: 20081010
  Serious: Yes (Hospitalization)
  Sender: FDA-Public Use
  Company Number: FR-AVENTIS-200811753FR

PATIENT
  Age: 70 Year
  Sex: Male

DRUGS (3)
  1. TAVANIC [Suspect]
     Route: 042
     Dates: start: 20080112, end: 20080130
  2. FLAGYL [Suspect]
     Route: 048
     Dates: start: 20080118, end: 20080130
  3. FLAGYL [Suspect]
     Route: 042
     Dates: start: 20080117, end: 20080118

REACTIONS (1)
  - PANCYTOPENIA [None]
